FAERS Safety Report 9481464 (Version 2)
Quarter: 2013Q3

REPORT INFORMATION
  Report Type: Spontaneous
  Country: US (occurrence: US)
  Receive Date: 20130828
  Receipt Date: 20130828
  Transmission Date: 20140515
  Serious: Yes (Other)
  Sender: FDA-Public Use
  Company Number: US-AMGEN-KDL167431

PATIENT
  Age: 65 Year
  Sex: Male

DRUGS (12)
  1. ENBREL [Suspect]
     Indication: ANKYLOSING SPONDYLITIS
     Dosage: 50 MG, QWK
     Route: 058
     Dates: start: 20050414
  2. INDOMETHACIN [Concomitant]
     Dosage: 75 MG, UNK
  3. ASPIRIN [Concomitant]
  4. AMLODIPINE BESILATE [Concomitant]
  5. GUANFACINE HYDROCHLORIDE [Concomitant]
  6. ZINC [Concomitant]
  7. LANSOPRAZOLE [Concomitant]
  8. FLUOXETINE HYDROCHLORIDE [Concomitant]
  9. ALPRAZOLAM [Concomitant]
  10. ATORVASTATIN CALCIUM [Concomitant]
  11. ALENDRONATE SODIUM [Concomitant]
  12. UNSPECIFIED MEDICATION [Concomitant]

REACTIONS (3)
  - Herpes zoster [Recovered/Resolved]
  - Hypoaesthesia [Not Recovered/Not Resolved]
  - Rash [Recovered/Resolved]
